FAERS Safety Report 4918471-0 (Version None)
Quarter: 2006Q1

REPORT INFORMATION
  Report Type: 
  Country: None (occurrence: None)
  Receive Date: 20060214
  Receipt Date: 20060125
  Transmission Date: 20060701
  Serious: Yes (Hospitalization, Other)
  Sender: FDA-Public Use
  Company Number: FR200601004391

PATIENT
  Age: 82 Year
  Sex: Female

DRUGS (5)
  1. FORTEO [Suspect]
     Indication: OSTEOPOROSIS
     Dosage: 20 UG DAILY (1/D) SUBCUTANEOUS
     Route: 058
     Dates: start: 20051001, end: 20060110
  2. FORTEO [Concomitant]
  3. PROPRANOLOL [Concomitant]
  4. DIOSMINIL (DIOSMIN) [Concomitant]
  5. OROCAL (CALCIUM CARBONATE) [Concomitant]

REACTIONS (7)
  - EPISTAXIS [None]
  - FALL [None]
  - HEPATIC ENZYME ABNORMAL [None]
  - HYPERTENSION [None]
  - MALAISE [None]
  - RIB FRACTURE [None]
  - STERNAL FRACTURE [None]
